FAERS Safety Report 21957306 (Version 3)
Quarter: 2023Q1

REPORT INFORMATION
  Report Type: Spontaneous
  Country: US (occurrence: US)
  Receive Date: 20230206
  Receipt Date: 20230327
  Transmission Date: 20230417
  Serious: No
  Sender: FDA-Public Use
  Company Number: US-PFIZER INC-202300046899

PATIENT
  Age: 12 Year
  Sex: Female
  Weight: 28.118 kg

DRUGS (1)
  1. GENOTROPIN [Suspect]
     Active Substance: SOMATROPIN
     Indication: Growth failure
     Dosage: 1 MG, 1X/DAY
     Dates: start: 202208

REACTIONS (1)
  - Device issue [Unknown]
